FAERS Safety Report 11330334 (Version 1)
Quarter: 2015Q3

REPORT INFORMATION
  Report Type: Spontaneous
  Country: US (occurrence: None)
  Receive Date: 20150730
  Receipt Date: 20150730
  Transmission Date: 20151125
  Serious: Yes (Disabling)
  Sender: FDA-Public Use
  Company Number: None

PATIENT
  Age: 65 Year
  Sex: Female
  Weight: 56.7 kg

DRUGS (6)
  1. AZITHROMYCIN [Suspect]
     Active Substance: AZITHROMYCIN ANHYDROUS
     Indication: OTITIS MEDIA
     Dosage: 2 PILLS 1ST DAY  1 PILL NEXT 4   ONCE DAILY  TAKEN BY MOUTH
     Route: 048
     Dates: start: 20150507, end: 20150511
  2. VITAMIN + MINERAL SUPPLEMENT [Concomitant]
  3. COQ-10 UBIQUINONE [Concomitant]
  4. VITAMIN C WITH BIOFLAVINOIDS [Concomitant]
  5. COD LIVER OIL [Concomitant]
     Active Substance: COD LIVER OIL
  6. EVENING PRIMROSE OIL [Concomitant]
     Active Substance: EVENING PRIMROSE OIL

REACTIONS (5)
  - Dyspepsia [None]
  - Dizziness [None]
  - Gastrointestinal disorder [None]
  - Vomiting [None]
  - Deafness [None]

NARRATIVE: CASE EVENT DATE: 20150507
